FAERS Safety Report 7103199-1 (Version None)
Quarter: 2010Q4

REPORT INFORMATION
  Report Type: 
  Country: None (occurrence: None)
  Receive Date: 20101115
  Receipt Date: 20101111
  Transmission Date: 20110411
  Serious: Yes (Hospitalization, Other)
  Sender: FDA-Public Use
  Company Number: US-MERCK-1009USA00267

PATIENT
  Age: 76 Year
  Sex: Male

DRUGS (16)
  1. DECADRON PHOSPHATE [Suspect]
     Indication: MULTIPLE MYELOMA
     Route: 042
     Dates: start: 20090623
  2. DECADRON PHOSPHATE [Suspect]
     Route: 042
     Dates: start: 20090630
  3. DECADRON PHOSPHATE [Suspect]
     Route: 042
     Dates: start: 20090721
  4. DECADRON PHOSPHATE [Suspect]
     Route: 042
     Dates: start: 20090728
  5. DECADRON PHOSPHATE [Suspect]
     Route: 042
     Dates: start: 20090818
  6. DECADRON PHOSPHATE [Suspect]
     Route: 042
     Dates: start: 20090825
  7. DECADRON PHOSPHATE [Suspect]
     Route: 042
     Dates: start: 20090915
  8. DECADRON PHOSPHATE [Suspect]
     Route: 042
     Dates: start: 20090922
  9. DECADRON PHOSPHATE [Suspect]
     Route: 042
     Dates: start: 20091013
  10. DECADRON PHOSPHATE [Suspect]
     Route: 042
     Dates: start: 20091020
  11. DECADRON PHOSPHATE [Suspect]
     Route: 042
     Dates: start: 20091110
  12. MELPHALAN [Concomitant]
     Route: 065
  13. THALIDOMIDE [Concomitant]
     Route: 065
  14. VELCADE [Concomitant]
     Indication: MULTIPLE MYELOMA
     Route: 065
  15. ZOMETA [Concomitant]
     Route: 065
  16. REVLIMID [Concomitant]
     Indication: MULTIPLE MYELOMA
     Route: 065

REACTIONS (2)
  - MULTIPLE MYELOMA [None]
  - RENAL FAILURE [None]
